FAERS Safety Report 5123698-1 (Version None)
Quarter: 2006Q4

REPORT INFORMATION
  Report Type: 
  Country: None (occurrence: None)
  Receive Date: 20061010
  Receipt Date: 20060927
  Transmission Date: 20070319
  Serious: Yes (Hospitalization)
  Sender: FDA-Public Use
  Company Number: DEWYE046627SEP06

PATIENT
  Sex: Female

DRUGS (2)
  1. ENBREL [Suspect]
     Indication: PSORIASIS
     Route: 058
     Dates: start: 20060901
  2. RAPTIVA [Suspect]
     Indication: PSORIASIS
     Dosage: UNKNOWN
     Dates: end: 20060901

REACTIONS (1)
  - PUSTULAR PSORIASIS [None]
